FAERS Safety Report 4362163-6 (Version None)
Quarter: 2004Q2

REPORT INFORMATION
  Report Type: 
  Country: None (occurrence: None)
  Receive Date: 20040517
  Receipt Date: 20040503
  Transmission Date: 20050107
  Serious: Yes (Hospitalization, Other)
  Sender: FDA-Public Use
  Company Number: HQWYE008331DEC03

PATIENT
  Age: 44 Year
  Sex: Female
  Weight: 62.65 kg

DRUGS (1)
  1. ALESSE [Suspect]
     Indication: CONTRACEPTION
     Dosage: 1 TABLET DAILY, ORAL
     Route: 048
     Dates: start: 20030801, end: 20031206

REACTIONS (8)
  - ANXIETY [None]
  - CHEST WALL PAIN [None]
  - HEADACHE [None]
  - PAIN IN EXTREMITY [None]
  - PLEURITIC PAIN [None]
  - PULMONARY EMBOLISM [None]
  - RESTLESSNESS [None]
  - TACHYPNOEA [None]
